FAERS Safety Report 9660967 (Version 1)
Quarter: 2013Q4

REPORT INFORMATION
  Report Type: Spontaneous
  Country: JP (occurrence: JP)
  Receive Date: 20131031
  Receipt Date: 20131031
  Transmission Date: 20140711
  Serious: Yes (Death)
  Sender: FDA-Public Use
  Company Number: JP-BAYER-2013-128744

PATIENT
  Sex: Male

DRUGS (3)
  1. STIVARGA [Suspect]
     Dosage: 160 MG, QD
     Route: 048
     Dates: start: 20130519, end: 20130523
  2. STIVARGA [Suspect]
     Dosage: 120 MG, QD
     Route: 048
     Dates: start: 20130603, end: 20130606
  3. STIVARGA [Suspect]
     Dosage: 80 MG, QD
     Route: 048
     Dates: start: 20130611, end: 20130625

REACTIONS (3)
  - Pneumonia aspiration [Fatal]
  - Musculoskeletal stiffness [Unknown]
  - Hypertension [Unknown]
